FAERS Safety Report 12820036 (Version 1)
Quarter: 2016Q4

REPORT INFORMATION
  Report Type: Report from Study
  Country: US (occurrence: US)
  Receive Date: 20161006
  Receipt Date: 20161006
  Transmission Date: 20170207
  Serious: No
  Sender: FDA-Public Use
  Company Number: US-AMGEN-USASL2015120304

PATIENT
  Age: 92 Year
  Sex: Female

DRUGS (4)
  1. EXELON [Concomitant]
     Active Substance: RIVASTIGMINE TARTRATE
     Dosage: 9.5 MG, UNK
  2. NEXIUM [Concomitant]
     Active Substance: ESOMEPRAZOLE MAGNESIUM
     Dosage: 40 MG, UNK
  3. PROLIA [Suspect]
     Active Substance: DENOSUMAB
     Indication: OSTEOPOROSIS POSTMENOPAUSAL
     Dosage: UNK
     Route: 065
  4. MEMANTINE. [Concomitant]
     Active Substance: MEMANTINE
     Dosage: 10 MG, UNK
     Dates: start: 201510

REACTIONS (2)
  - Spinal deformity [Unknown]
  - Disorientation [Unknown]

NARRATIVE: CASE EVENT DATE: 20151110
